FAERS Safety Report 24223848 (Version 1)
Quarter: 2024Q3

REPORT INFORMATION
  Report Type: Spontaneous
  Country: IN (occurrence: IN)
  Receive Date: 20240819
  Receipt Date: 20240819
  Transmission Date: 20241016
  Serious: Yes (Other)
  Sender: DR REDDYS
  Company Number: IN-RDY-SPO/IND/24/0011900

PATIENT

DRUGS (1)
  1. FINASTERIDE [Suspect]
     Active Substance: FINASTERIDE
     Indication: Product used for unknown indication
     Dosage: FOR 2 DAYS.

REACTIONS (5)
  - Insomnia [Unknown]
  - Depression [Unknown]
  - Erectile dysfunction [Unknown]
  - Cognitive disorder [Unknown]
  - Mental disorder [Unknown]
